FAERS Safety Report 8178787-4 (Version None)
Quarter: 2012Q1

REPORT INFORMATION
  Report Type: 
  Country: None (occurrence: None)
  Receive Date: 20120301
  Receipt Date: 20120221
  Transmission Date: 20120608
  Serious: Yes (Hospitalization)
  Sender: FDA-Public Use
  Company Number: US-ASTRAZENECA-2012SE11783

PATIENT
  Age: 57 Year
  Sex: Female
  Weight: 81.6 kg

DRUGS (12)
  1. CRESTOR [Suspect]
     Indication: HYPERCHOLESTEROLAEMIA
     Route: 048
  2. WELLBUTRIN [Concomitant]
     Indication: SLEEP DISORDER
     Route: 048
  3. ZOLOFT [Concomitant]
     Indication: ANXIETY
     Route: 048
  4. LEVOTHYROXINE SODIUM [Concomitant]
     Indication: HYPOTHYROIDISM
     Route: 048
  5. ZOLOFT [Concomitant]
     Indication: DEPRESSION
     Route: 048
  6. WELLBUTRIN [Concomitant]
     Indication: ANXIETY
     Route: 048
  7. PREVACID [Concomitant]
     Indication: GASTROOESOPHAGEAL REFLUX DISEASE
     Route: 048
  8. SEROQUEL [Suspect]
     Indication: SLEEP DISORDER
     Route: 048
     Dates: start: 20090101
  9. ZOLOFT [Concomitant]
     Indication: SLEEP DISORDER
     Route: 048
  10. SEROQUEL [Suspect]
     Indication: ANXIETY
     Route: 048
     Dates: start: 20090101
  11. SEROQUEL [Suspect]
     Indication: DEPRESSION
     Route: 048
     Dates: start: 20090101
  12. WELLBUTRIN [Concomitant]
     Indication: DEPRESSION
     Route: 048

REACTIONS (6)
  - INSOMNIA [None]
  - FEMUR FRACTURE [None]
  - PAIN IN EXTREMITY [None]
  - CORONARY ARTERY DISEASE [None]
  - OSTEOPOROSIS [None]
  - OFF LABEL USE [None]
